FAERS Safety Report 23895107 (Version 1)
Quarter: 2024Q2

REPORT INFORMATION
  Report Type: Spontaneous
  Country: CA (occurrence: None)
  Receive Date: 20240524
  Receipt Date: 20240524
  Transmission Date: 20240716
  Serious: Yes (Other)
  Sender: FDA-Public Use
  Company Number: CA-PFIZER INC-202400173268

PATIENT
  Age: 65 Year
  Sex: Female

DRUGS (7)
  1. METHOTREXATE [Suspect]
     Active Substance: METHOTREXATE
     Indication: Prophylaxis against graft versus host disease
  2. SIROLIMUS [Suspect]
     Active Substance: SIROLIMUS
     Indication: Chronic graft versus host disease
  3. CYCLOSPORINE [Suspect]
     Active Substance: CYCLOSPORINE
     Indication: Prophylaxis against graft versus host disease
  4. FLUDARABINE [Suspect]
     Active Substance: FLUDARABINE PHOSPHATE
     Indication: Bone marrow conditioning regimen
  5. MELPHALAN [Suspect]
     Active Substance: MELPHALAN
     Indication: Bone marrow conditioning regimen
  6. MYCOPHENOLATE MOFETIL [Suspect]
     Active Substance: MYCOPHENOLATE MOFETIL
     Indication: Chronic graft versus host disease
  7. TACROLIMUS [Suspect]
     Active Substance: TACROLIMUS
     Indication: Chronic graft versus host disease

REACTIONS (5)
  - Product use in unapproved indication [Recovered/Resolved]
  - Acute kidney injury [Recovered/Resolved]
  - Chronic graft versus host disease [Recovered/Resolved]
  - Chronic kidney disease [Recovered/Resolved]
  - Thrombotic microangiopathy [Recovered/Resolved]
